FAERS Safety Report 6389657-6 (Version None)
Quarter: 2009Q4

REPORT INFORMATION
  Report Type: 
  Country: None (occurrence: None)
  Receive Date: 20091006
  Receipt Date: 20090923
  Transmission Date: 20100525
  Serious: Yes (Death, Other)
  Sender: FDA-Public Use
  Company Number: US-BRISTOL-MYERS SQUIBB COMPANY-14791099

PATIENT

DRUGS (1)
  1. ERBITUX [Suspect]

REACTIONS (2)
  - HYPOMAGNESAEMIA [None]
  - VENTRICULAR TACHYCARDIA [None]
